FAERS Safety Report 6252329-2 (Version None)
Quarter: 2009Q2

REPORT INFORMATION
  Report Type: 
  Country: None (occurrence: None)
  Receive Date: 20090629
  Receipt Date: 20090629
  Transmission Date: 20091009
  Serious: Yes (Hospitalization, Disabling)
  Sender: FDA-Public Use
  Company Number: None

PATIENT
  Sex: Female
  Weight: 76.2043 kg

DRUGS (4)
  1. SYNTHROID [Suspect]
     Indication: HYPOTHYROIDISM
     Dosage: ONCE DAILY/ONLY ONCE DAILY ABOUT 1989 OR 1990 - 2008
  2. SYNTHROID [Suspect]
  3. LEVOTHYROXINE SODIUM [Suspect]
     Indication: HYPOTHYROIDISM
     Dosage: 50 MCG ONCE DAILY
     Dates: start: 20080101
  4. LEVOTHYROXINE SODIUM [Suspect]
     Indication: HYPOTHYROIDISM
     Dosage: 50 MCG ONCE DAILY
     Dates: start: 20090101

REACTIONS (15)
  - ALOPECIA [None]
  - BLOOD THYROID STIMULATING HORMONE DECREASED [None]
  - CEREBROVASCULAR ACCIDENT [None]
  - DRY SKIN [None]
  - FLUID RETENTION [None]
  - HEADACHE [None]
  - HEART RATE INCREASED [None]
  - LIP SWELLING [None]
  - MIGRAINE [None]
  - ONYCHOCLASIS [None]
  - RASH [None]
  - SWELLING [None]
  - SWELLING FACE [None]
  - TRANSIENT ISCHAEMIC ATTACK [None]
  - WEIGHT INCREASED [None]
